FAERS Safety Report 19702296 (Version 1)
Quarter: 2021Q3

REPORT INFORMATION
  Report Type: Other
  Country: JP (occurrence: JP)
  Receive Date: 20210814
  Receipt Date: 20210814
  Transmission Date: 20211014
  Serious: Yes (Death, Other)
  Sender: FDA-Public Use
  Company Number: JP-ROCHE-2886257

PATIENT
  Age: 83 Year
  Sex: Male

DRUGS (2)
  1. AVASTIN [Suspect]
     Active Substance: BEVACIZUMAB
     Indication: HEPATOCELLULAR CARCINOMA
     Dosage: 0.05 UNK
     Route: 042
     Dates: start: 202010
  2. TECENTRIQ [Suspect]
     Active Substance: ATEZOLIZUMAB
     Indication: HEPATOCELLULAR CARCINOMA
     Dosage: 0.05 UNK
     Route: 041
     Dates: start: 202010

REACTIONS (4)
  - Intra-abdominal haemorrhage [Unknown]
  - Haematoma infection [Unknown]
  - Death [Fatal]
  - Tumour rupture [Unknown]
